FAERS Safety Report 9090000 (Version 1)
Quarter: 2013Q1

REPORT INFORMATION
  Report Type: Report from Study
  Country: US (occurrence: US)
  Receive Date: 20130131
  Receipt Date: 20130131
  Transmission Date: 20140127
  Serious: No
  Sender: FDA-Public Use
  Company Number: US-ABBOTT-12P-163-1015124-00

PATIENT
  Sex: Female
  Weight: 86.26 kg

DRUGS (5)
  1. HUMIRA [Suspect]
     Indication: BEHCET^S SYNDROME
     Dates: start: 201210, end: 201211
  2. HUMIRA [Suspect]
     Indication: ARTHRITIS
     Dates: start: 201211
  3. LISINOPRIL [Concomitant]
     Indication: HYPERTENSION
  4. METFORMIN [Concomitant]
     Indication: DIABETES MELLITUS
  5. CITALOPRAM [Concomitant]
     Indication: DEPRESSION

REACTIONS (2)
  - Off label use [Not Recovered/Not Resolved]
  - Incorrect drug administration duration [Recovered/Resolved]
